FAERS Safety Report 7075196-6 (Version None)
Quarter: 2010Q4

REPORT INFORMATION
  Report Type: 
  Country: None (occurrence: None)
  Receive Date: 20101030
  Receipt Date: 20100507
  Transmission Date: 20110411
  Serious: No
  Sender: FDA-Public Use
  Company Number: US-WYE-H15083310

PATIENT
  Age: 90 Year
  Sex: Male
  Weight: 72.64 kg

DRUGS (2)
  1. ADVIL PM [Suspect]
     Indication: INSOMNIA
     Dosage: 1 CAPLET 2-3 X/WEEK
     Route: 048
     Dates: start: 20091201
  2. ADVAIR DISKUS 100/50 [Concomitant]

REACTIONS (1)
  - NASAL CONGESTION [None]
